FAERS Safety Report 5927030-2 (Version None)
Quarter: 2008Q4

REPORT INFORMATION
  Report Type: 
  Country: None (occurrence: None)
  Receive Date: 20081022
  Receipt Date: 20081014
  Transmission Date: 20090506
  Serious: Yes (Other)
  Sender: FDA-Public Use
  Company Number: PHHY2008DE17939

PATIENT

DRUGS (4)
  1. EXJADE [Suspect]
     Indication: THALASSAEMIA BETA
     Dosage: 750 MG DAILY
     Route: 048
     Dates: start: 20061207, end: 20080422
  2. EXJADE [Suspect]
     Dosage: 650 MG DAILY
     Route: 048
     Dates: start: 20080423, end: 20081009
  3. EXJADE [Suspect]
     Dosage: 500 MG DAILY
     Route: 048
     Dates: start: 20081010
  4. HUMAN GROWTH HORMONE, RECOMBINANT [Concomitant]
     Indication: HYPOTHALAMO-PITUITARY DISORDER
     Dosage: UNK

REACTIONS (2)
  - GROWTH RETARDATION [None]
  - INSULIN-LIKE GROWTH FACTOR DECREASED [None]
